FAERS Safety Report 5299631-9 (Version None)
Quarter: 2007Q1

REPORT INFORMATION
  Report Type: 
  Country: None (occurrence: None)
  Receive Date: 20070201
  Receipt Date: 20061102
  Transmission Date: 20070707
  Serious: No
  Sender: FDA-Public Use
  Company Number: 2006PV024426

PATIENT
  Age: 76 Year
  Sex: Female
  Weight: 68.9467 kg

DRUGS (10)
  1. BYETTA [Suspect]
     Indication: DIABETES MELLITUS NON-INSULIN-DEPENDENT
     Dosage: SEE IMAGE
     Route: 058
     Dates: start: 20060906, end: 20061006
  2. BYETTA [Suspect]
     Indication: DIABETES MELLITUS NON-INSULIN-DEPENDENT
     Dosage: SEE IMAGE
     Route: 058
     Dates: start: 20061007, end: 20061026
  3. BYETTA [Suspect]
     Indication: DIABETES MELLITUS NON-INSULIN-DEPENDENT
     Dosage: SEE IMAGE
     Route: 058
     Dates: start: 20061029, end: 20061029
  4. AMARYL [Concomitant]
  5. FORTAMET ER [Concomitant]
  6. COREG [Concomitant]
  7. DIGITEK [Concomitant]
  8. ATANCAND [Concomitant]
  9. REPLEVA [Concomitant]
  10. NEXIUM [Concomitant]

REACTIONS (16)
  - ARTHRALGIA [None]
  - BLOOD GLUCOSE DECREASED [None]
  - BLOOD PRESSURE INCREASED [None]
  - CONTUSION [None]
  - DECREASED APPETITE [None]
  - DISORIENTATION [None]
  - DIZZINESS [None]
  - DYSGEUSIA [None]
  - DYSPEPSIA [None]
  - FALL [None]
  - FEELING ABNORMAL [None]
  - HAEMARTHROSIS [None]
  - JOINT INJURY [None]
  - JOINT SWELLING [None]
  - VOMITING [None]
  - WEIGHT DECREASED [None]
